FAERS Safety Report 9239128 (Version 19)
Quarter: 2018Q4

REPORT INFORMATION
  Report Type: Report from Study
  Country: US (occurrence: US)
  Receive Date: 20130418
  Receipt Date: 20181009
  Transmission Date: 20190205
  Serious: Yes (Other)
  Sender: FDA-Public Use
  Company Number: US-SANOFI-AVENTIS-2013SA038853

PATIENT
  Age: 58 Year
  Sex: Female
  Weight: 68.03 kg

DRUGS (10)
  1. TERIFLUNOMIDE. [Suspect]
     Active Substance: TERIFLUNOMIDE
     Dosage: 14 MG,QD
     Route: 048
     Dates: start: 20130206, end: 20130307
  2. TERIFLUNOMIDE. [Suspect]
     Active Substance: TERIFLUNOMIDE
     Dosage: 14 MG,QD
     Route: 048
     Dates: start: 20140415
  3. AMPYRA [Concomitant]
     Active Substance: DALFAMPRIDINE
     Indication: MULTIPLE SCLEROSIS
     Dosage: UNK UNK,BID
     Dates: start: 20010101
  4. AMPYRA [Concomitant]
     Active Substance: DALFAMPRIDINE
     Indication: ILL-DEFINED DISORDER
     Dosage: 10 MG,BID
     Dates: start: 2012
  5. TERIFLUNOMIDE. [Suspect]
     Active Substance: TERIFLUNOMIDE
     Dosage: 14 MG,QD
     Route: 048
     Dates: start: 20121216
  6. TERIFLUNOMIDE. [Suspect]
     Active Substance: TERIFLUNOMIDE
     Dosage: 14 MG,QD
     Route: 048
  7. AMPYRA [Concomitant]
     Active Substance: DALFAMPRIDINE
     Indication: GAIT DISTURBANCE
  8. TERIFLUNOMIDE. [Suspect]
     Active Substance: TERIFLUNOMIDE
     Dosage: 14 MG,QD
     Route: 048
     Dates: start: 20130912, end: 20140318
  9. TERIFLUNOMIDE. [Suspect]
     Active Substance: TERIFLUNOMIDE
     Dosage: 14 MG,QD
     Route: 048
     Dates: end: 201504
  10. TERIFLUNOMIDE. [Suspect]
     Active Substance: TERIFLUNOMIDE
     Dosage: 14 MG,QD
     Route: 048
     Dates: start: 20130415

REACTIONS (14)
  - Confusional state [Unknown]
  - Haematochezia [Recovered/Resolved]
  - Anal haemorrhage [Recovered/Resolved]
  - Scratch [Unknown]
  - Decreased appetite [Recovered/Resolved]
  - Fall [Recovered/Resolved]
  - Depression [Not Recovered/Not Resolved]
  - Product dose omission [Unknown]
  - Crying [Not Recovered/Not Resolved]
  - Faeces pale [Recovered/Resolved]
  - Multiple sclerosis [Not Recovered/Not Resolved]
  - Haematuria [Recovered/Resolved]
  - Unevaluable event [Unknown]
  - Abdominal pain upper [Recovered/Resolved]

NARRATIVE: CASE EVENT DATE: 201303
